FAERS Safety Report 6378027-2 (Version None)
Quarter: 2009Q3

REPORT INFORMATION
  Report Type: 
  Country: None (occurrence: None)
  Receive Date: 20090921
  Receipt Date: 20090817
  Transmission Date: 20100115
  Serious: Yes (Disabling)
  Sender: FDA-Public Use
  Company Number: APP200900588

PATIENT
  Sex: Female

DRUGS (4)
  1. NAROPIN [Suspect]
     Indication: MUSCULOSKELETAL PAIN
     Dosage: CONTINUOUS VIA PUMP, INTRA-ARTICUILAR, CONTINOUS  VIA PUMP, INTRA-ARTICULAR
     Route: 014
     Dates: start: 20060401
  2. NAROPIN [Suspect]
     Indication: MUSCULOSKELETAL PAIN
     Dosage: CONTINUOUS VIA PUMP, INTRA-ARTICUILAR, CONTINOUS  VIA PUMP, INTRA-ARTICULAR
     Route: 014
     Dates: start: 20070418
  3. STRYKER PAIN PUMP [Suspect]
     Indication: MUSCULOSKELETAL PAIN
     Dates: start: 20060401
  4. STRYKER PAIN PUMP [Suspect]
     Indication: MUSCULOSKELETAL PAIN
     Dates: start: 20070418

REACTIONS (2)
  - CARTILAGE INJURY [None]
  - MUSCULOSKELETAL PAIN [None]
